FAERS Safety Report 8080364-0 (Version None)
Quarter: 2012Q1

REPORT INFORMATION
  Report Type: 
  Country: None (occurrence: None)
  Receive Date: 20120130
  Receipt Date: 20120123
  Transmission Date: 20120608
  Serious: Yes (Other)
  Sender: FDA-Public Use
  Company Number: NL-PFIZER INC-2012017931

PATIENT
  Age: 74 Year
  Sex: Female

DRUGS (5)
  1. ALUCONE [Concomitant]
  2. HYDROCHLOROTHIAZIDE [Concomitant]
     Dosage: UNK
  3. DORZOLAMIDE [Suspect]
     Dosage: UNK
  4. METOPROLOL [Concomitant]
     Dosage: UNK
  5. XALATAN [Suspect]
     Dosage: UNK

REACTIONS (11)
  - SUICIDAL IDEATION [None]
  - MALAISE [None]
  - FATIGUE [None]
  - CARDIAC DISORDER [None]
  - DRY MOUTH [None]
  - AGGRESSION [None]
  - NAUSEA [None]
  - BLOOD PRESSURE INCREASED [None]
  - NERVOUSNESS [None]
  - ABNORMAL FAECES [None]
  - DIZZINESS [None]
